FAERS Safety Report 8961708 (Version 2)
Quarter: 2013Q1

REPORT INFORMATION
  Report Type: Spontaneous
  Country: US (occurrence: US)
  Receive Date: 20121213
  Receipt Date: 20130108
  Transmission Date: 20140127
  Serious: No
  Sender: FDA-Public Use
  Company Number: US-JNJFOC-20121200721

PATIENT
  Age: 88 Year
  Sex: Male
  Weight: 58.97 kg

DRUGS (1)
  1. SANDOZ FENTANYL TRANSDERMAL SYSTEM [Suspect]
     Indication: COMPRESSION FRACTURE
     Route: 062
     Dates: start: 20121116

REACTIONS (2)
  - Product quality issue [Unknown]
  - Poor quality drug administered [Not Recovered/Not Resolved]
